FAERS Safety Report 17212016 (Version 1)
Quarter: 2019Q4

REPORT INFORMATION
  Report Type: Spontaneous
  Country: US (occurrence: US)
  Receive Date: 20191230
  Receipt Date: 20191230
  Transmission Date: 20200122
  Serious: No
  Sender: FDA-Public Use
  Company Number: US-ALLERGAN-1945326US

PATIENT
  Sex: Male
  Weight: 90.72 kg

DRUGS (7)
  1. TAFAMIDIS [Suspect]
     Active Substance: TAFAMIDIS MEGLUMINE
     Indication: PRODUCT USED FOR UNKNOWN INDICATION
     Dosage: 81 MG, QD
     Route: 048
     Dates: start: 2018
  2. CENTRUM FOR OLD PEOPLE [Concomitant]
  3. POTASSIUM [Concomitant]
     Active Substance: POTASSIUM
     Dosage: 20 MEQ WITH THE WATER PILL
  4. TORSEMED [Concomitant]
     Dosage: 100 MG, HALF IN THE MORNING AND HALF IN THE AFTERNOON
  5. BYSTOLIC [Suspect]
     Active Substance: NEBIVOLOL HYDROCHLORIDE
     Indication: HEART RATE IRREGULAR
     Dosage: 25 MG (HALF A TABLET ONCE A DAY)
     Route: 048
     Dates: start: 201908
  6. TRAMADOL. [Concomitant]
     Active Substance: TRAMADOL
     Indication: PAIN
     Dosage: 25 MG ONCE A WHILE DEPENDING ON HOW BAD HIS ANKLE HURT BUT WILL TAKE IT ONCE A DAY
  7. GOUT PILL [Concomitant]
     Dosage: MAY BE 25 MG

REACTIONS (2)
  - Off label use [Unknown]
  - Muscular weakness [Not Recovered/Not Resolved]

NARRATIVE: CASE EVENT DATE: 2019
